FAERS Safety Report 7897901-9 (Version None)
Quarter: 2011Q4

REPORT INFORMATION
  Report Type: 
  Country: None (occurrence: None)
  Receive Date: 20111103
  Receipt Date: 20111021
  Transmission Date: 20120403
  Serious: Yes (Hospitalization)
  Sender: FDA-Public Use
  Company Number: 2011S1001475

PATIENT
  Age: 61 Year
  Sex: Female

DRUGS (1)
  1. LIVALO [Suspect]
     Indication: DYSLIPIDAEMIA
     Dosage: 0.5 DF;1X;PO
     Route: 048
     Dates: start: 20110928, end: 20111004

REACTIONS (4)
  - MUSCLE SPASMS [None]
  - CONDITION AGGRAVATED [None]
  - MYALGIA [None]
  - BLOOD CREATINE PHOSPHOKINASE INCREASED [None]
